FAERS Safety Report 9575100 (Version 1)
Quarter: 2013Q4

REPORT INFORMATION
  Report Type: Spontaneous
  Country: US (occurrence: US)
  Receive Date: 20131001
  Receipt Date: 20131001
  Transmission Date: 20140711
  Serious: Yes (Death)
  Sender: FDA-Public Use
  Company Number: US-PFIZER INC-2013277807

PATIENT
  Age: 76 Year
  Sex: Female

DRUGS (1)
  1. REVATIO [Suspect]
     Indication: BREAST DISORDER
     Dosage: 20 MG, 3X/DAY
     Dates: start: 20100624

REACTIONS (1)
  - Cardiac failure [Fatal]
